FAERS Safety Report 15831873 (Version 1)
Quarter: 2019Q1

REPORT INFORMATION
  Report Type: Spontaneous
  Country: US (occurrence: US)
  Receive Date: 20190116
  Receipt Date: 20190116
  Transmission Date: 20190417
  Serious: Yes (Life-Threatening, Hospitalization, Other)
  Sender: FDA-Public Use
  Company Number: US-LUPIN PHARMACEUTICALS INC.-2019-00046

PATIENT
  Age: 15 Year
  Sex: Male

DRUGS (2)
  1. VILAZODONE [Suspect]
     Active Substance: VILAZODONE
     Indication: PRODUCT USED FOR UNKNOWN INDICATION
     Dosage: 20 MG, SINGLE (30 TABLETS)
     Route: 048
  2. BUPROPION. [Suspect]
     Active Substance: BUPROPION
     Indication: PRODUCT USED FOR UNKNOWN INDICATION
     Dosage: 300 MG, SINGLE (60 TABLETS)
     Route: 048

REACTIONS (9)
  - Amnesia [Unknown]
  - Intentional overdose [Unknown]
  - Cerebral hypoperfusion [Unknown]
  - Hypotension [Unknown]
  - Serotonin syndrome [Unknown]
  - Hypoxia [Unknown]
  - Cerebral infarction [Unknown]
  - Partial seizures [Unknown]
  - Brain injury [Unknown]
